FAERS Safety Report 8601014-8 (Version None)
Quarter: 2012Q3

REPORT INFORMATION
  Report Type: 
  Country: None (occurrence: None)
  Receive Date: 20120817
  Receipt Date: 20120807
  Transmission Date: 20120928
  Serious: Yes (Hospitalization, Other)
  Sender: FDA-Public Use
  Company Number: JP-ASTELLAS-2012JP007565

PATIENT
  Age: 68 Year
  Sex: Female

DRUGS (4)
  1. PROGRAF [Suspect]
     Indication: SCLEREMA
     Dosage: 1 MG, UNKNOWN/D
     Route: 065
  2. PROGRAF [Suspect]
     Dosage: 3 MG, UNKNOWN/D
     Route: 065
  3. PROGRAF [Suspect]
     Dosage: 2 MG, UNKNOWN/D
     Route: 065
  4. PREDNISOLONE [Suspect]
     Indication: SCLEREMA
     Route: 065

REACTIONS (4)
  - SCLERODERMA RENAL CRISIS [None]
  - DRUG INEFFECTIVE FOR UNAPPROVED INDICATION [None]
  - SCLEREMA [None]
  - THROMBOTIC MICROANGIOPATHY [None]
